FAERS Safety Report 9156763 (Version 2)
Quarter: 2013Q2

REPORT INFORMATION
  Report Type: Spontaneous
  Country: IT (occurrence: IT)
  Receive Date: 20130312
  Receipt Date: 20130520
  Transmission Date: 20140414
  Serious: Yes (Hospitalization)
  Sender: FDA-Public Use
  Company Number: IT-ELI_LILLY_AND_COMPANY-IT201302010127

PATIENT
  Age: 37 Year
  Sex: Female

DRUGS (5)
  1. ZYPREXA [Suspect]
     Indication: PERSONALITY DISORDER
     Dosage: 10 DF, UNK
     Dates: end: 20130225
  2. TEGRETOL [Concomitant]
     Indication: PERSONALITY DISORDER
     Dosage: 6 UNK, UNK
     Route: 048
     Dates: start: 20130225, end: 20130225
  3. MIRTAZAPINE [Concomitant]
     Indication: PERSONALITY DISORDER
     Dosage: 15 DF, UNK
     Route: 048
     Dates: start: 20130225, end: 20130225
  4. RISPERIDONE [Concomitant]
     Indication: AFFECTIVE DISORDER
  5. AMISULPRIDE [Concomitant]
     Indication: AFFECTIVE DISORDER

REACTIONS (3)
  - Confusional state [Recovered/Resolved]
  - Sopor [Recovered/Resolved]
  - Intentional overdose [Recovered/Resolved]
